FAERS Safety Report 10678919 (Version 3)
Quarter: 2015Q1

REPORT INFORMATION
  Report Type: Spontaneous
  Country: US (occurrence: US)
  Receive Date: 20141229
  Receipt Date: 20150326
  Transmission Date: 20150720
  Serious: No
  Sender: FDA-Public Use
  Company Number: US-PFIZER INC-2014358722

PATIENT
  Age: 69 Year
  Sex: Male
  Weight: 86 kg

DRUGS (16)
  1. TRAMADOL [Concomitant]
     Active Substance: TRAMADOL
     Indication: PAIN
     Dosage: 50 MG, AS NEEDED
     Route: 048
  2. PRISTIQ EXTENDED RELEASE [Suspect]
     Active Substance: DESVENLAFAXINE SUCCINATE
     Indication: DEPRESSION
     Dosage: 50 MG, DAILY
     Route: 048
     Dates: start: 20141222, end: 20141223
  3. LATANOPROST. [Concomitant]
     Active Substance: LATANOPROST
     Dosage: ONE DROP IN EACH EYE, EACH EVENING
     Route: 047
     Dates: start: 201206
  4. BUPROPION [Concomitant]
     Active Substance: BUPROPION
     Dosage: 100 MG, 3X/DAY
     Route: 048
     Dates: start: 201107
  5. CLONAZEPAM. [Concomitant]
     Active Substance: CLONAZEPAM
     Dosage: 1/2 OF A 1 MG TABLET IN THE MORNING AND 1/2 OF A 1 MG TABLET IN THE EVENING
     Route: 048
     Dates: start: 201107
  6. ASPIRIN. [Concomitant]
     Active Substance: ASPIRIN
     Dosage: 81 MG, DAILY
     Route: 048
     Dates: start: 201204
  7. VITAMIN D3 [Concomitant]
     Active Substance: CHOLECALCIFEROL
     Dosage: 2000 IU, DAILY
     Route: 048
     Dates: start: 201305
  8. PRISTIQ EXTENDED RELEASE [Suspect]
     Active Substance: DESVENLAFAXINE SUCCINATE
     Indication: ANXIETY
     Dosage: 100 MG, DAILY
     Route: 048
     Dates: start: 20141224
  9. RANITIDINE [Concomitant]
     Active Substance: RANITIDINE\RANITIDINE HYDROCHLORIDE
     Dosage: 150 MG, 2X/DAY
     Route: 048
     Dates: start: 201407
  10. PRAVASTATIN [Concomitant]
     Active Substance: PRAVASTATIN\PRAVASTATIN SODIUM
     Dosage: 40 MG, DAILY
     Route: 048
     Dates: start: 201209
  11. BENADRYL [Concomitant]
     Active Substance: DIPHENHYDRAMINE HYDROCHLORIDE
     Indication: NASAL CONGESTION
     Dosage: 10 MG, AS NEEDED
     Route: 048
  12. ACETAMINOPHEN/ASPIRIN/CAFFEINE [Concomitant]
     Indication: ARTHRALGIA
     Dosage: [ACETYLSALICYLIC ACID 250MG]/[CAFFEINE 65MG]/[PARACETAMOL 250MG]; AS NEEDED
     Route: 048
  13. PRAMIPEXOLE [Concomitant]
     Active Substance: PRAMIPEXOLE
     Indication: RESTLESS LEGS SYNDROME
     Dosage: 0.125 MG, EACH EVENING
     Route: 048
     Dates: start: 20140512
  14. PRISTIQ EXTENDED RELEASE [Suspect]
     Active Substance: DESVENLAFAXINE SUCCINATE
     Dosage: 50 MG, 1X/DAY
     Route: 048
  15. ATENOLOL. [Concomitant]
     Active Substance: ATENOLOL
     Dosage: 25 MG, DAILY
     Route: 048
     Dates: start: 201103
  16. ZYRTEC [Concomitant]
     Active Substance: CETIRIZINE HYDROCHLORIDE
     Dosage: 10 MG, DAILY
     Route: 048
     Dates: start: 201405

REACTIONS (2)
  - Male sexual dysfunction [Recovered/Resolved]
  - Malaise [Recovered/Resolved]

NARRATIVE: CASE EVENT DATE: 20141223
